FAERS Safety Report 5765844-2 (Version None)
Quarter: 2008Q2

REPORT INFORMATION
  Report Type: 
  Country: None (occurrence: None)
  Receive Date: 20080611
  Receipt Date: 20080530
  Transmission Date: 20081010
  Serious: Yes (Death)
  Sender: FDA-Public Use
  Company Number: CA-PFIZER INC-2008048622

PATIENT
  Age: 46 Year
  Sex: Male

DRUGS (2)
  1. ALPRAZOLAM [Suspect]
  2. DURAGESIC-100 [Suspect]
     Indication: PAIN
     Route: 048

REACTIONS (4)
  - DRUG ABUSE [None]
  - DRUG TOXICITY [None]
  - DUODENAL ULCER PERFORATION [None]
  - OVERDOSE [None]
